FAERS Safety Report 26174381 (Version 1)
Quarter: 2025Q4

REPORT INFORMATION
  Report Type: Spontaneous
  Country: US (occurrence: US)
  Receive Date: 20251218
  Receipt Date: 20251218
  Transmission Date: 20260118
  Serious: No
  Sender: USAntibiotics
  Company Number: US-USAN-USUSAN2025SPO000016

PATIENT

DRUGS (13)
  1. AUGMENTIN [Suspect]
     Active Substance: AMOXICILLIN\CLAVULANATE POTASSIUM
  2. ALENDRONATE [Concomitant]
     Active Substance: ALENDRONATE SODIUM
  3. ALLEGRA-D [Concomitant]
     Active Substance: FEXOFENADINE HYDROCHLORIDE\PSEUDOEPHEDRINE HYDROCHLORIDE
  4. AMLODIPINE [Concomitant]
     Active Substance: AMLODIPINE BESYLATE
  5. Areds2 [Concomitant]
  6. RITUXAN [Concomitant]
     Active Substance: RITUXIMAB
  7. BUPROPION [Concomitant]
     Active Substance: BUPROPION
  8. CALCIUM [Concomitant]
     Active Substance: CALCIUM
  9. HYDROCHLOROTHIAZIDE [Concomitant]
     Active Substance: HYDROCHLOROTHIAZIDE
  10. Hyrdroxychloroquine Sulfate [Concomitant]
  11. LOSARTAN [Concomitant]
     Active Substance: LOSARTAN
  12. VITAMINS [Concomitant]
     Active Substance: VITAMINS
  13. TRAMADOL [Concomitant]
     Active Substance: TRAMADOL

REACTIONS (3)
  - Vomiting [Unknown]
  - Diarrhoea [Unknown]
  - Nausea [Unknown]
